FAERS Safety Report 6196541-X (Version None)
Quarter: 2009Q2

REPORT INFORMATION
  Report Type: 
  Country: None (occurrence: None)
  Receive Date: 20090520
  Receipt Date: 20090513
  Transmission Date: 20091009
  Serious: Yes (Other)
  Sender: FDA-Public Use
  Company Number: BR-ABBOTT-09P-020-0569822-00

PATIENT
  Sex: Female

DRUGS (3)
  1. HUMIRA [Suspect]
     Indication: RHEUMATOID ARTHRITIS
     Route: 058
     Dates: start: 20080707, end: 20081112
  2. HUMIRA [Suspect]
     Route: 058
     Dates: start: 20090504
  3. ENALAPRIL [Concomitant]
     Indication: HYPERTENSION
     Route: 048

REACTIONS (5)
  - BRONCHOPNEUMONIA [None]
  - CHOLELITHIASIS [None]
  - COUGH [None]
  - HYPERSENSITIVITY [None]
  - SINUSITIS [None]
